FAERS Safety Report 7009705-X (Version None)
Quarter: 2010Q3

REPORT INFORMATION
  Report Type: 
  Country: None (occurrence: None)
  Receive Date: 20100923
  Receipt Date: 20100916
  Transmission Date: 20110219
  Serious: Yes (Life-Threatening, Hospitalization, Other)
  Sender: FDA-Public Use
  Company Number: NL-BAYER-201033776GPV

PATIENT
  Age: 31 Year
  Sex: Female
  Weight: 80 kg

DRUGS (3)
  1. MIRENA [Suspect]
     Indication: CONTRACEPTION
     Route: 015
     Dates: start: 20100124, end: 20100803
  2. MIRENA [Suspect]
     Route: 015
     Dates: start: 20100409, end: 20100601
  3. MINISTAT [Concomitant]

REACTIONS (6)
  - ADNEXA UTERI CYST [None]
  - ANXIETY [None]
  - DEPRESSION [None]
  - HEARING IMPAIRED [None]
  - SUICIDAL IDEATION [None]
  - UTERINE PERFORATION [None]
